FAERS Safety Report 7522591-4 (Version None)
Quarter: 2011Q2

REPORT INFORMATION
  Report Type: 
  Country: None (occurrence: None)
  Receive Date: 20110603
  Receipt Date: 20110531
  Transmission Date: 20111010
  Serious: Yes (Other)
  Sender: FDA-Public Use
  Company Number: JP-ABBOTT-11P-087-0729018-00

PATIENT
  Sex: Male

DRUGS (16)
  1. VOLTAREN [Suspect]
     Indication: PRODUCT USED FOR UNKNOWN INDICATION
  2. CLARITHROMYCIN [Suspect]
     Indication: PERIODONTITIS
     Route: 048
     Dates: start: 20110311, end: 20110315
  3. NIKORANMART [Concomitant]
     Indication: PRODUCT USED FOR UNKNOWN INDICATION
  4. TEPRENONE [Concomitant]
     Indication: PRODUCT USED FOR UNKNOWN INDICATION
  5. ONEALFA [Concomitant]
     Indication: PRODUCT USED FOR UNKNOWN INDICATION
  6. ALLORIN [Concomitant]
     Indication: PRODUCT USED FOR UNKNOWN INDICATION
  7. PLAVIX [Concomitant]
     Indication: PRODUCT USED FOR UNKNOWN INDICATION
  8. CLARITHROMYCIN [Suspect]
     Dates: start: 20110520, end: 20110521
  9. CETILO COMPOUND TAB [Concomitant]
     Indication: PRODUCT USED FOR UNKNOWN INDICATION
  10. MAIBASTAN [Concomitant]
     Indication: PRODUCT USED FOR UNKNOWN INDICATION
  11. AMLODIPINE TOWA [Concomitant]
     Indication: PRODUCT USED FOR UNKNOWN INDICATION
  12. GASLON N [Concomitant]
     Indication: PRODUCT USED FOR UNKNOWN INDICATION
  13. LOXONIN [Concomitant]
     Indication: PRODUCT USED FOR UNKNOWN INDICATION
  14. PERORIC [Concomitant]
     Indication: PRODUCT USED FOR UNKNOWN INDICATION
  15. ELPINAN [Concomitant]
     Indication: PRODUCT USED FOR UNKNOWN INDICATION
  16. OMEPRAZOLE [Concomitant]
     Indication: PRODUCT USED FOR UNKNOWN INDICATION

REACTIONS (2)
  - POLLAKIURIA [None]
  - MUSCULAR WEAKNESS [None]
